FAERS Safety Report 8555112-8 (Version None)
Quarter: 2012Q3

REPORT INFORMATION
  Report Type: 
  Country: None (occurrence: None)
  Receive Date: 20120731
  Receipt Date: 20120727
  Transmission Date: 20120928
  Serious: Yes (Death)
  Sender: FDA-Public Use
  Company Number: US-CELGENEUS-163-21880-12073034

PATIENT
  Sex: Male
  Weight: 68.1 kg

DRUGS (7)
  1. VITAMIN E [Concomitant]
     Route: 065
  2. AMIODARONE HCL [Concomitant]
     Route: 065
  3. METOPROLOL TARTRATE [Concomitant]
     Route: 065
  4. AMLODIPINE [Concomitant]
     Route: 065
  5. M.V.I. [Concomitant]
     Route: 065
  6. PROCRIT [Concomitant]
     Route: 065
  7. REVLIMID [Suspect]
     Dosage: 5 MILLIGRAM
     Route: 048
     Dates: start: 20120402, end: 20120626

REACTIONS (1)
  - DEATH [None]
